FAERS Safety Report 17969512 (Version 1)
Quarter: 2020Q3

REPORT INFORMATION
  Report Type: Spontaneous
  Country: NO (occurrence: NO)
  Receive Date: 20200701
  Receipt Date: 20200701
  Transmission Date: 20201103
  Serious: Yes (Death, Other)
  Sender: FDA-Public Use
  Company Number: NO-MYLANLABS-2020M1059289

PATIENT
  Age: 33 Year
  Sex: Female

DRUGS (1)
  1. BUPRENORPHINE. [Suspect]
     Active Substance: BUPRENORPHINE
     Indication: DRUG WITHDRAWAL MAINTENANCE THERAPY
     Dosage: UNK

REACTIONS (3)
  - Overdose [Fatal]
  - Maternal exposure during pregnancy [Recovered/Resolved]
  - Toxicity to various agents [Fatal]
